FAERS Safety Report 8566740-8 (Version None)
Quarter: 2012Q3

REPORT INFORMATION
  Report Type: 
  Country: None (occurrence: None)
  Receive Date: 20120803
  Receipt Date: 20111104
  Transmission Date: 20120928
  Serious: No
  Sender: FDA-Public Use
  Company Number: US-ABBOTT-11P-163-0870144-00

PATIENT
  Sex: Female
  Weight: 108.96 kg

DRUGS (1)
  1. NIASPAN [Suspect]
     Indication: BLOOD CHOLESTEROL INCREASED
     Route: 048
     Dates: start: 20111001, end: 20111001

REACTIONS (5)
  - FLUSHING [None]
  - TREMOR [None]
  - CHILLS [None]
  - GAIT DISTURBANCE [None]
  - SKIN BURNING SENSATION [None]
